FAERS Safety Report 25615742 (Version 1)
Quarter: 2025Q3

REPORT INFORMATION
  Report Type: Spontaneous
  Country: EU (occurrence: EU)
  Receive Date: 20250729
  Receipt Date: 20250729
  Transmission Date: 20251020
  Serious: Yes (Hospitalization, Other)
  Sender: AUROBINDO
  Company Number: EU-AFSSAPS-BS2025000558

PATIENT
  Age: 59 Year
  Sex: Female

DRUGS (2)
  1. PREDNISOLONE [Suspect]
     Active Substance: PREDNISOLONE
     Indication: Small intestinal obstruction
     Dosage: 1 DOSAGE FORM, ONCE A DAY (DE 40 ? 260 MG/JOUR)
     Route: 048
     Dates: start: 20250215
  2. METHYLPREDNISOLONE [Suspect]
     Active Substance: METHYLPREDNISOLONE
     Indication: Small intestinal obstruction
     Dosage: 1 DOSAGE FORM, ONCE A DAY (1 DOSAGE FORM, ONCE A DAY (DE 40 ? 260 MG/JOUR))
     Route: 042
     Dates: start: 20250215

REACTIONS (2)
  - Steroid diabetes [Not Recovered/Not Resolved]
  - Bronchopulmonary aspergillosis [Recovered/Resolved]

NARRATIVE: CASE EVENT DATE: 20250228
